FAERS Safety Report 20623444 (Version 2)
Quarter: 2022Q2

REPORT INFORMATION
  Report Type: Report from Study
  Country: US (occurrence: US)
  Receive Date: 20220322
  Receipt Date: 20220414
  Transmission Date: 20220720
  Serious: Yes (Hospitalization, Other)
  Sender: FDA-Public Use
  Company Number: US-BAYER-2022A037617

PATIENT
  Age: 63 Year
  Sex: Male

DRUGS (2)
  1. STIVARGA [Suspect]
     Active Substance: REGORAFENIB
     Indication: Hepatocellular carcinoma
     Dosage: 160 MG, QD FOR 21 DAYS ON AND 7 DAYS OFF AFTER A LOW FAT MEAL
     Route: 048
     Dates: start: 20211219, end: 20220308
  2. STIVARGA [Suspect]
     Active Substance: REGORAFENIB
     Indication: Gastrointestinal stromal tumour
     Dosage: UNK
     Dates: start: 20220312

REACTIONS (3)
  - Localised infection [Not Recovered/Not Resolved]
  - Impaired self-care [None]
  - Mobility decreased [None]
